FAERS Safety Report 21756391 (Version 1)
Quarter: 2022Q4

REPORT INFORMATION
  Report Type: Report from Study
  Country: US (occurrence: US)
  Receive Date: 20221220
  Receipt Date: 20221220
  Transmission Date: 20230113
  Serious: No
  Sender: FDA-Public Use
  Company Number: US-ABBVIE-4199106

PATIENT
  Age: 35 Year
  Sex: Male

DRUGS (3)
  1. SKYRIZI [Suspect]
     Active Substance: RISANKIZUMAB-RZAA
     Indication: Psoriasis
     Dosage: FORM STRENGTH: 150 MILLIGRAM
     Route: 058
     Dates: start: 20221013
  2. SKYRIZI [Suspect]
     Active Substance: RISANKIZUMAB-RZAA
     Dosage: WEEK: 0?FORM STRENGTH: 150 MILLIGRAM?FREQUENCY: ONE IN ONCE
     Route: 058
  3. SKYRIZI [Suspect]
     Active Substance: RISANKIZUMAB-RZAA
     Dosage: WEEK: 4?FORM STRENGTH: 150 MILLIGRAM?FREQUENCY: ONE IN ONCE
     Route: 058

REACTIONS (4)
  - Injection site papule [Recovered/Resolved]
  - Erythema [Unknown]
  - Nasopharyngitis [Recovered/Resolved]
  - Pruritus [Unknown]

NARRATIVE: CASE EVENT DATE: 20221101
